FAERS Safety Report 25320308 (Version 2)
Quarter: 2025Q2

REPORT INFORMATION
  Report Type: Spontaneous
  Country: BR (occurrence: BR)
  Receive Date: 20250515
  Receipt Date: 20250527
  Transmission Date: 20250716
  Serious: Yes (Other)
  Sender: SANOFI AVENTIS
  Company Number: BR-SA-2025SA136587

PATIENT
  Age: 53 Year
  Sex: Female
  Weight: 72 kg

DRUGS (5)
  1. DUPILUMAB [Suspect]
     Active Substance: DUPILUMAB
     Indication: Asthma
     Dosage: 300 MG, QOW
     Dates: start: 202407, end: 20250425
  2. BECLOMETHASONE\FORMOTEROL [Concomitant]
     Active Substance: BECLOMETHASONE\FORMOTEROL
     Indication: Rhinitis allergic
     Dosage: 200/6 MCG POWDER FOR INHALATION -2 INHALATIONS EVERY 12 HOURS
     Route: 045
  3. BECLOMETHASONE\FORMOTEROL [Concomitant]
     Active Substance: BECLOMETHASONE\FORMOTEROL
     Indication: Asthma
  4. BUDESONIDE [Concomitant]
     Active Substance: BUDESONIDE
     Indication: Rhinitis allergic
     Route: 045
  5. BUDESONIDE [Concomitant]
     Active Substance: BUDESONIDE
     Indication: Asthma

REACTIONS (1)
  - Cutaneous vasculitis [Recovering/Resolving]

NARRATIVE: CASE EVENT DATE: 20250401
